FAERS Safety Report 9059174 (Version 1)
Quarter: 2013Q1

REPORT INFORMATION
  Report Type: Spontaneous
  Country: US (occurrence: US)
  Receive Date: 20130211
  Receipt Date: 20130211
  Transmission Date: 20140127
  Serious: No
  Sender: FDA-Public Use
  Company Number: US-BRISTOL-MYERS SQUIBB COMPANY-17135575

PATIENT
  Age: 49 Year
  Sex: Male
  Weight: 90.7 kg

DRUGS (3)
  1. KOMBIGLYZE XR [Suspect]
     Indication: TYPE 2 DIABETES MELLITUS
     Dosage: FORMULATON-KOMBIGLYZE XR 2.5/1000?DOSE INCREASED TO 2PILLS/D,AGAIN REDUCED TO 1PILL/D
     Dates: start: 201208
  2. METFORMIN HCL [Suspect]
     Indication: TYPE 2 DIABETES MELLITUS
  3. CYMBALTA [Suspect]
     Indication: DIABETIC NEUROPATHY
     Dosage: FORMULATION-CYMBALTA 30MG

REACTIONS (3)
  - Insomnia [Unknown]
  - Weight decreased [Unknown]
  - Local swelling [Unknown]
